FAERS Safety Report 21581842 (Version 2)
Quarter: 2022Q4

REPORT INFORMATION
  Report Type: Spontaneous
  Country: US (occurrence: US)
  Receive Date: 20221111
  Receipt Date: 20221201
  Transmission Date: 20230113
  Serious: No
  Sender: FDA-Public Use
  Company Number: US-SA-SAC20221110000109

PATIENT
  Sex: Male

DRUGS (15)
  1. DUPIXENT [Suspect]
     Active Substance: DUPILUMAB
     Indication: Dermatitis atopic
     Dosage: 300 MG, QOW
     Route: 058
     Dates: start: 20211121
  2. AUGMENTIN [Concomitant]
     Active Substance: AMOXICILLIN\CLAVULANATE POTASSIUM
  3. MONTELUKAST SODIUM [Concomitant]
     Active Substance: MONTELUKAST SODIUM
  4. LORAZEPAM [Concomitant]
     Active Substance: LORAZEPAM
  5. LETROZOLE [Concomitant]
     Active Substance: LETROZOLE
  6. HYDROCORTISONE [Concomitant]
     Active Substance: HYDROCORTISONE
  7. FLUOCINONIDE [Concomitant]
     Active Substance: FLUOCINONIDE
  8. DOXYCYCLINE [Concomitant]
     Active Substance: DOXYCYCLINE
  9. CLOBETASOL PROPIONATE [Concomitant]
     Active Substance: CLOBETASOL PROPIONATE
  10. CIPROFLOXACIN HYDROCHLORIDE [Concomitant]
     Active Substance: CIPROFLOXACIN HYDROCHLORIDE
  11. AMITRIPTYLINE HYDROCHLORIDE [Concomitant]
     Active Substance: AMITRIPTYLINE HYDROCHLORIDE
  12. AMOXICILLIN [Concomitant]
     Active Substance: AMOXICILLIN
  13. ALBUTEROL SULFATE [Concomitant]
     Active Substance: ALBUTEROL SULFATE
  14. CEFDINIR [Concomitant]
     Active Substance: CEFDINIR
  15. ACYCLOVIR [Concomitant]
     Active Substance: ACYCLOVIR

REACTIONS (2)
  - Respiratory tract infection [Not Recovered/Not Resolved]
  - Sinusitis [Not Recovered/Not Resolved]
